FAERS Safety Report 6803367-X (Version None)
Quarter: 2010Q2

REPORT INFORMATION
  Report Type: 
  Country: None (occurrence: None)
  Receive Date: 20100628
  Receipt Date: 20100616
  Transmission Date: 20101027
  Serious: Yes (Other)
  Sender: FDA-Public Use
  Company Number: JP-PFIZER INC-2010075474

PATIENT
  Age: 40 Year
  Sex: Female

DRUGS (2)
  1. VFEND [Suspect]
     Dosage: 600 MG, 1X/DAY
     Route: 048
     Dates: start: 20100612, end: 20100616
  2. WARFARIN [Concomitant]

REACTIONS (1)
  - INTERNATIONAL NORMALISED RATIO INCREASED [None]
